FAERS Safety Report 17088404 (Version 1)
Quarter: 2019Q4

REPORT INFORMATION
  Report Type: Report from Study
  Country: US (occurrence: US)
  Receive Date: 20191128
  Receipt Date: 20191128
  Transmission Date: 20200122
  Serious: Yes (Other)
  Sender: FDA-Public Use
  Company Number: US-PFIZER INC-2019503614

PATIENT

DRUGS (2)
  1. X4P-001 [Suspect]
     Active Substance: INVESTIGATIONAL PRODUCT
     Dosage: UNK
  2. AXITINIB [Suspect]
     Active Substance: AXITINIB
     Dosage: UNK

REACTIONS (1)
  - Spinal cord compression [Unknown]

NARRATIVE: CASE EVENT DATE: 20181014
